FAERS Safety Report 11553586 (Version 1)
Quarter: 2015Q3

REPORT INFORMATION
  Report Type: Spontaneous
  Country: US (occurrence: None)
  Receive Date: 20150924
  Receipt Date: 20150924
  Transmission Date: 20151125
  Serious: No
  Sender: FDA-Public Use
  Company Number: None

PATIENT

DRUGS (1)
  1. FASLODEX [Suspect]
     Active Substance: FULVESTRANT
     Route: 030

REACTIONS (5)
  - Product physical consistency issue [None]
  - Syringe issue [None]
  - Laceration [None]
  - Injury associated with device [None]
  - Injury [None]

NARRATIVE: CASE EVENT DATE: 20150916
